FAERS Safety Report 9174012 (Version 2)
Quarter: 2013Q3

REPORT INFORMATION
  Report Type: Spontaneous
  Country: US (occurrence: None)
  Receive Date: 20130313
  Receipt Date: 20130722
  Transmission Date: 20140515
  Serious: Yes (Hospitalization)
  Sender: FDA-Public Use
  Company Number: 2013P1002957

PATIENT
  Age: 70 Year
  Sex: Female

DRUGS (3)
  1. INFUMORPH [Suspect]
     Indication: BACK PAIN
     Route: 037
     Dates: start: 20070510
  2. INFUMORPH [Suspect]
     Indication: PAIN
     Route: 037
     Dates: start: 20070510
  3. INFUMORPH [Suspect]
     Indication: LUMBAR RADICULOPATHY
     Route: 037
     Dates: start: 20070510

REACTIONS (2)
  - Drug ineffective [None]
  - Meningitis [None]
